FAERS Safety Report 26012547 (Version 1)
Quarter: 2025Q4

REPORT INFORMATION
  Report Type: Spontaneous
  Country: US (occurrence: US)
  Receive Date: 20251107
  Receipt Date: 20251107
  Transmission Date: 20260117
  Serious: No
  Sender: ROCHE
  Company Number: US-ROCHE-10000420957

PATIENT
  Age: 74 Year
  Sex: Male
  Weight: 98.43 kg

DRUGS (3)
  1. XOLAIR [Suspect]
     Active Substance: OMALIZUMAB
     Indication: Asthma
     Route: 058
  2. XOLAIR [Suspect]
     Active Substance: OMALIZUMAB
     Indication: Asthma
     Route: 065
     Dates: start: 2022
  3. XOLAIR [Suspect]
     Active Substance: OMALIZUMAB

REACTIONS (8)
  - Accidental underdose [Unknown]
  - Pain in extremity [Not Recovered/Not Resolved]
  - Fear of injection [Not Recovered/Not Resolved]
  - Product preparation error [Unknown]
  - Accidental exposure to product [Unknown]
  - Injection site induration [Not Recovered/Not Resolved]
  - Device use issue [Unknown]
  - Product use issue [Unknown]

NARRATIVE: CASE EVENT DATE: 20251026
